FAERS Safety Report 4416242-5 (Version None)
Quarter: 2004Q3

REPORT INFORMATION
  Report Type: 
  Country: None (occurrence: None)
  Receive Date: 20040805
  Receipt Date: 20040729
  Transmission Date: 20050211
  Serious: Yes (Hospitalization)
  Sender: FDA-Public Use
  Company Number: 200412883FR

PATIENT
  Age: 31 Year
  Sex: Male

DRUGS (9)
  1. RIFAMPIN AND ISONIAZID [Suspect]
     Route: 048
     Dates: start: 20030822, end: 20030928
  2. ENBREL [Suspect]
     Route: 058
     Dates: start: 20030923, end: 20030926
  3. METHOTREXATE [Concomitant]
     Route: 048
     Dates: start: 20030822
  4. MS CONTIN [Concomitant]
     Dosage: DOSE: 30-0-30
     Dates: start: 20030822
  5. DUPHALAC [Concomitant]
     Dates: start: 20030822
  6. CELEBREX [Concomitant]
     Dosage: DOSE: 1-0-1; DOSE UNIT: UNITS
     Dates: start: 20030822
  7. DIPROSONE CREME [Concomitant]
     Route: 061
     Dates: start: 20030822
  8. FLAMMAZINE [Concomitant]
     Route: 061
     Dates: start: 20030822
  9. ZAMUDOL [Concomitant]

REACTIONS (3)
  - DISEASE RECURRENCE [None]
  - PANCREATITIS ACUTE [None]
  - PSORIATIC ARTHROPATHY [None]
